FAERS Safety Report 18711185 (Version 2)
Quarter: 2021Q1

REPORT INFORMATION
  Report Type: Report from Study
  Country: CA (occurrence: CA)
  Receive Date: 20210107
  Receipt Date: 20210201
  Transmission Date: 20210419
  Serious: Yes (Hospitalization)
  Sender: FDA-Public Use
  Company Number: CA-JNJFOC-20210104591

PATIENT
  Age: 76 Year
  Sex: Male
  Weight: 80.4 kg

DRUGS (1)
  1. REMICADE [Suspect]
     Active Substance: INFLIXIMAB
     Indication: CROHN^S DISEASE
     Route: 042
     Dates: start: 20191114

REACTIONS (4)
  - Frequent bowel movements [Unknown]
  - Flatulence [Unknown]
  - Proctalgia [Unknown]
  - Small intestinal resection [Recovering/Resolving]

NARRATIVE: CASE EVENT DATE: 20201230
